FAERS Safety Report 12275946 (Version 1)
Quarter: 2016Q2

REPORT INFORMATION
  Report Type: Spontaneous
  Country: US (occurrence: None)
  Receive Date: 20160415
  Receipt Date: 20160415
  Transmission Date: 20160815
  Serious: Yes (Death)
  Sender: FDA-Public Use
  Company Number: None

PATIENT
  Age: 59 Year
  Sex: Male

DRUGS (10)
  1. ATORVASTATIN [Concomitant]
     Active Substance: ATORVASTATIN
  2. KEPPRA [Concomitant]
     Active Substance: LEVETIRACETAM
  3. TEMOZOLOMIDE 20 MG CAPSULE TEVA [Suspect]
     Active Substance: TEMOZOLOMIDE
     Indication: BRAIN NEOPLASM
     Route: 048
     Dates: start: 20160127, end: 20160321
  4. TEMOZOLOMIDE 140 MG CAPSULE TEVA [Suspect]
     Active Substance: TEMOZOLOMIDE
     Indication: BRAIN NEOPLASM
     Route: 048
     Dates: start: 20160127, end: 20160321
  5. NYSTATIN. [Concomitant]
     Active Substance: NYSTATIN
  6. OMEPRAZOLE. [Concomitant]
     Active Substance: OMEPRAZOLE
  7. COREG [Concomitant]
     Active Substance: CARVEDILOL
  8. DEXAMETHASONE. [Concomitant]
     Active Substance: DEXAMETHASONE
  9. ONDANSETRON [Concomitant]
     Active Substance: ONDANSETRON
  10. FEBOFIBRATE [Concomitant]

REACTIONS (1)
  - Respiratory arrest [None]

NARRATIVE: CASE EVENT DATE: 20160321
